FAERS Safety Report 19730347 (Version 2)
Quarter: 2021Q3

REPORT INFORMATION
  Report Type: Spontaneous
  Country: DE (occurrence: DE)
  Receive Date: 20210820
  Receipt Date: 20210903
  Transmission Date: 20211014
  Serious: Yes (Life-Threatening, Hospitalization, Other)
  Sender: FDA-Public Use
  Company Number: DE-GLAXOSMITHKLINE-DECH2021054283

PATIENT
  Age: 41 Year
  Sex: Female

DRUGS (45)
  1. PARACETAMOL [Suspect]
     Active Substance: ACETAMINOPHEN
     Indication: PRODUCT USED FOR UNKNOWN INDICATION
     Dosage: UNK
     Route: 065
  2. HYDROCHLOROTHIAZIDE. [Suspect]
     Active Substance: HYDROCHLOROTHIAZIDE
     Dosage: UNK
     Route: 065
     Dates: start: 201407, end: 201407
  3. HYDROCHLOROTHIAZIDE. [Suspect]
     Active Substance: HYDROCHLOROTHIAZIDE
     Dosage: UNK
     Route: 065
     Dates: start: 20160427
  4. VALSARTAN. [Suspect]
     Active Substance: VALSARTAN
     Dosage: 80 MG
     Route: 065
     Dates: start: 20140707
  5. GRANOCYTE [Suspect]
     Active Substance: LENOGRASTIM
     Dosage: UNK
     Route: 065
     Dates: start: 20160203, end: 20160205
  6. DOXORUBICINE [Suspect]
     Active Substance: DOXORUBICIN
     Indication: HODGKIN^S DISEASE
     Dosage: 25 MG/M2 (QOW)
     Route: 065
     Dates: start: 20151027, end: 201512
  7. LYRICA [Concomitant]
     Active Substance: PREGABALIN
     Indication: PRODUCT USED FOR UNKNOWN INDICATION
     Dosage: UNK
     Route: 065
     Dates: start: 2016
  8. VALSARTAN. [Suspect]
     Active Substance: VALSARTAN
     Dosage: 16012.5 MG
     Route: 065
     Dates: start: 201407, end: 201410
  9. DACARBAZINE. [Suspect]
     Active Substance: DACARBAZINE
     Indication: HODGKIN^S DISEASE
     Dosage: 375 MG/M2 (DAY 1 AND 1 DAY 15)
     Route: 065
     Dates: start: 20151027, end: 201512
  10. VINCRISTINE SULFATE. [Suspect]
     Active Substance: VINCRISTINE SULFATE
     Indication: HODGKIN^S DISEASE
     Dosage: 2 MG (2 MG ABSOLUTE)
     Route: 065
     Dates: start: 20160120
  11. PANTOZOL [Concomitant]
     Active Substance: PANTOPRAZOLE SODIUM
     Indication: PRODUCT USED FOR UNKNOWN INDICATION
     Dosage: UNK
     Route: 065
  12. DIAZEPAM. [Concomitant]
     Active Substance: DIAZEPAM
     Indication: PRODUCT USED FOR UNKNOWN INDICATION
     Dosage: UNK
     Route: 065
  13. HYDROCHLOROTHIAZIDE. [Suspect]
     Active Substance: HYDROCHLOROTHIAZIDE
     Dosage: UNK
     Route: 065
     Dates: start: 20140707
  14. ETOPOSIDE. [Suspect]
     Active Substance: ETOPOSIDE
     Indication: HODGKIN^S DISEASE
     Dosage: 100 MG/M2 (DAY 1?3)
     Route: 065
     Dates: start: 20160113
  15. BACLOFEN. [Concomitant]
     Active Substance: BACLOFEN
     Indication: PRODUCT USED FOR UNKNOWN INDICATION
     Dosage: UNK
     Route: 065
  16. ACETYLSALICYLIC ACID [Suspect]
     Active Substance: ASPIRIN
     Indication: PRODUCT USED FOR UNKNOWN INDICATION
     Dosage: UNK
     Route: 065
  17. HYDROCHLOROTHIAZIDE. [Suspect]
     Active Substance: HYDROCHLOROTHIAZIDE
     Dosage: UNK
     Route: 065
     Dates: start: 20141014
  18. HYDROCHLOROTHIAZIDE. [Suspect]
     Active Substance: HYDROCHLOROTHIAZIDE
     Dosage: UNK
     Route: 065
     Dates: start: 20150102
  19. HYDROCHLOROTHIAZIDE. [Suspect]
     Active Substance: HYDROCHLOROTHIAZIDE
     Dosage: UNK
     Route: 065
     Dates: start: 20150611
  20. NEULASTA [Suspect]
     Active Substance: PEGFILGRASTIM
     Indication: NEUTROPENIA
     Dosage: UNK
     Route: 058
     Dates: start: 20151212, end: 20151212
  21. COTRIMOX [Concomitant]
     Active Substance: SULFAMETHOXAZOLE\TRIMETHOPRIM
     Indication: PRODUCT USED FOR UNKNOWN INDICATION
     Dosage: UNK
     Route: 065
  22. HYDROCHLOROTHIAZIDE. [Suspect]
     Active Substance: HYDROCHLOROTHIAZIDE
     Dosage: UNK
     Route: 065
     Dates: start: 20140707, end: 201410
  23. PALLADON [Concomitant]
     Active Substance: HYDROMORPHONE
     Indication: PRODUCT USED FOR UNKNOWN INDICATION
     Dosage: UNK
     Route: 065
  24. MOTILIUM M [Concomitant]
     Active Substance: DOMPERIDONE MALEATE
     Indication: PRODUCT USED FOR UNKNOWN INDICATION
     Dosage: UNK
     Route: 065
  25. MOVICOL [Concomitant]
     Active Substance: POLYETHYLENE GLYCOL 3350\POTASSIUM CHLORIDE\SODIUM BICARBONATE\SODIUM CHLORIDE
     Indication: PRODUCT USED FOR UNKNOWN INDICATION
     Dosage: UNK
     Route: 065
  26. DICLOFENAC (DICLOFENAC SODIUM) [Suspect]
     Active Substance: DICLOFENAC SODIUM
     Indication: PRODUCT USED FOR UNKNOWN INDICATION
     Dosage: UNK
     Route: 065
  27. HYDROCHLOROTHIAZIDE. [Suspect]
     Active Substance: HYDROCHLOROTHIAZIDE
     Indication: HYPERTENSION
     Dosage: UNK
     Route: 065
     Dates: start: 201410, end: 201704
  28. GRANOCYTE [Suspect]
     Active Substance: LENOGRASTIM
     Indication: NEUTROPENIA
     Dosage: 1 DF, QD
     Route: 065
     Dates: start: 20160120, end: 201601
  29. CITALOPRAM [Concomitant]
     Active Substance: CITALOPRAM HYDROBROMIDE
     Indication: PRODUCT USED FOR UNKNOWN INDICATION
     Dosage: UNK
     Route: 065
  30. VALSARTAN. [Concomitant]
     Active Substance: VALSARTAN
     Indication: PRODUCT USED FOR UNKNOWN INDICATION
     Dosage: UNK
     Route: 065
     Dates: start: 20130124
  31. IBUPROFEN. [Suspect]
     Active Substance: IBUPROFEN
     Indication: PRODUCT USED FOR UNKNOWN INDICATION
     Dosage: UNK
     Route: 065
  32. CYCLOPHOSPHAMIDE. [Suspect]
     Active Substance: CYCLOPHOSPHAMIDE
     Indication: HODGKIN^S DISEASE
     Dosage: 750 MG/M2
     Route: 065
     Dates: start: 20160113
  33. PREDNISOLONE. [Suspect]
     Active Substance: PREDNISOLONE
     Indication: HODGKIN^S DISEASE
     Dosage: 80 MG, QD
     Route: 065
     Dates: start: 20160113, end: 20160126
  34. VINBLASTINE [Suspect]
     Active Substance: VINBLASTINE
     Indication: HODGKIN^S DISEASE
     Dosage: 6 MG/M2 (QOW, 2 WEEKS)
     Route: 065
     Dates: start: 20151027, end: 201512
  35. BLEOMYCIN [Suspect]
     Active Substance: BLEOMYCIN SULFATE
     Indication: HODGKIN^S DISEASE
     Dosage: 10 MG/M2 (DAY 1 AND DAY 15)
     Route: 065
     Dates: start: 20160120
  36. BLEOMYCIN [Suspect]
     Active Substance: BLEOMYCIN SULFATE
     Dosage: 25 MG/M2 (2 WEEKS, QOW)
     Route: 065
     Dates: start: 20151027, end: 201512
  37. PROCARBAZINE [Suspect]
     Active Substance: PROCARBAZINE
     Indication: HODGKIN^S DISEASE
     Dosage: 100 MG/M2, QD
     Route: 065
     Dates: start: 20190113, end: 20190119
  38. MORPHINE [Concomitant]
     Active Substance: MORPHINE
     Indication: PRODUCT USED FOR UNKNOWN INDICATION
     Dosage: UNK
     Route: 065
  39. TRANXILIUM [Concomitant]
     Active Substance: CLORAZEPATE DIPOTASSIUM
     Indication: PRODUCT USED FOR UNKNOWN INDICATION
     Dosage: UNK
     Route: 065
  40. HYDROCHLOROTHIAZIDE. [Suspect]
     Active Substance: HYDROCHLOROTHIAZIDE
     Dosage: UNK
     Route: 065
     Dates: start: 20150415
  41. HYDROCHLOROTHIAZIDE. [Suspect]
     Active Substance: HYDROCHLOROTHIAZIDE
     Dosage: UNK
     Route: 065
     Dates: start: 20160804
  42. VALSARTAN. [Suspect]
     Active Substance: VALSARTAN
     Indication: HYPERTENSION
     Dosage: 16012.5 MG
     Route: 065
     Dates: start: 201407, end: 201410
  43. BACLOFEN. [Suspect]
     Active Substance: BACLOFEN
     Indication: PRODUCT USED FOR UNKNOWN INDICATION
     Dosage: 200 UG
     Route: 065
  44. DOXORUBICINE [Suspect]
     Active Substance: DOXORUBICIN
     Dosage: 25 MG/M2
     Route: 065
     Dates: start: 20160113
  45. VALSACOR COMP [Concomitant]
     Active Substance: HYDROCHLOROTHIAZIDE\VALSARTAN
     Indication: PRODUCT USED FOR UNKNOWN INDICATION
     Dosage: UNK
     Route: 065

REACTIONS (66)
  - Red blood cell sedimentation rate increased [Unknown]
  - General physical health deterioration [Unknown]
  - Pain [Recovering/Resolving]
  - Pulmonary congestion [Unknown]
  - Basal ganglion degeneration [Unknown]
  - Inflammation [Unknown]
  - Bone pain [Unknown]
  - Headache [Unknown]
  - Movement disorder [Unknown]
  - Fall [Recovered/Resolved]
  - Intervertebral disc disorder [Unknown]
  - Nausea [Recovering/Resolving]
  - Vomiting [Recovering/Resolving]
  - Respiratory failure [Unknown]
  - Drug abuse [Unknown]
  - Pyrexia [Unknown]
  - Obesity [Unknown]
  - Uterine enlargement [Unknown]
  - Sleep apnoea syndrome [Unknown]
  - Somnolence [Unknown]
  - Splenomegaly [Unknown]
  - Hypothyroidism [Unknown]
  - Tissue infiltration [Unknown]
  - Pneumonia [Unknown]
  - Hyperpyrexia [Unknown]
  - Loss of consciousness [Unknown]
  - Drug hypersensitivity [Unknown]
  - Hepatic steatosis [Unknown]
  - Haematoma [Unknown]
  - Neurological decompensation [Unknown]
  - Hypochromic anaemia [Unknown]
  - Lung disorder [Unknown]
  - Muscle spasticity [Unknown]
  - Cough [Unknown]
  - Myalgia [Unknown]
  - Dysaesthesia [Unknown]
  - Hypoaesthesia [Unknown]
  - Fatigue [Unknown]
  - Tremor [Unknown]
  - Inguinal hernia [Unknown]
  - Lymphadenopathy [Recovering/Resolving]
  - Urinary tract infection [Unknown]
  - Device malfunction [Unknown]
  - Arthralgia [Unknown]
  - Renal cyst [Unknown]
  - Dysphagia [Unknown]
  - Dyspnoea [Recovering/Resolving]
  - Pain in extremity [Recovering/Resolving]
  - Hodgkin^s disease [Unknown]
  - Viral infection [Unknown]
  - Abdominal tenderness [Unknown]
  - Psychogenic seizure [Unknown]
  - Hyperhidrosis [Unknown]
  - Tachycardia [Unknown]
  - Tenderness [Unknown]
  - Candida infection [Unknown]
  - Back pain [Recovering/Resolving]
  - Klebsiella infection [Unknown]
  - Spinal pain [Unknown]
  - Monoplegia [Unknown]
  - Neutropenia [Unknown]
  - Drug intolerance [Unknown]
  - Dizziness [Unknown]
  - Fall [Recovered/Resolved]
  - Sleep disorder [Unknown]
  - Hyperventilation [Unknown]

NARRATIVE: CASE EVENT DATE: 2015
